FAERS Safety Report 25437111 (Version 1)
Quarter: 2025Q2

REPORT INFORMATION
  Report Type: Spontaneous
  Country: US (occurrence: US)
  Receive Date: 20250615
  Receipt Date: 20250615
  Transmission Date: 20250716
  Serious: No
  Sender: BRISTOL-MYERS SQUIBB COMPANY
  Company Number: US-BRISTOL-MYERS SQUIBB COMPANY-2025-084824

PATIENT
  Age: 67 Year
  Sex: Female

DRUGS (2)
  1. POMALYST [Suspect]
     Active Substance: POMALIDOMIDE
     Indication: Plasma cell myeloma
     Dosage: ONCE A DAY FOR 21 DAYS
     Route: 048
     Dates: start: 202201
  2. POMALYST [Suspect]
     Active Substance: POMALIDOMIDE
     Indication: Plasmacytoma

REACTIONS (2)
  - Muscle spasms [Unknown]
  - Diarrhoea [Unknown]
